FAERS Safety Report 8803898 (Version 2)
Quarter: 2012Q4

REPORT INFORMATION
  Report Type: Report from Study
  Country: BR (occurrence: BR)
  Receive Date: 20120924
  Receipt Date: 20121001
  Transmission Date: 20130627
  Serious: Yes (Disabling, Other)
  Sender: FDA-Public Use
  Company Number: BR-INCYTE CORPORATION-2012IN001805

PATIENT
  Age: 44 None
  Sex: Male
  Weight: 75 kg

DRUGS (2)
  1. INC424 [Suspect]
     Indication: MYELOFIBROSIS
     Dosage: 20 mg, bid
     Route: 048
     Dates: start: 20111219
  2. INC424 [Suspect]
     Dosage: 15 mg, bid
     Route: 048
     Dates: start: 20120911

REACTIONS (4)
  - Osteoporosis [Not Recovered/Not Resolved]
  - Femur fracture [Not Recovered/Not Resolved]
  - Joint effusion [Not Recovered/Not Resolved]
  - Thrombocytopenia [Unknown]
